FAERS Safety Report 9873754 (Version 2)
Quarter: 2014Q1

REPORT INFORMATION
  Report Type: Other
  Country: US (occurrence: US)
  Receive Date: 20140206
  Receipt Date: 20140206
  Transmission Date: 20141002
  Serious: No
  Sender: FDA-Public Use
  Company Number: US-ACORDA-ACO_33840_2013

PATIENT
  Age: 78 Year
  Sex: Female

DRUGS (7)
  1. AMPYRA [Suspect]
     Indication: MULTIPLE SCLEROSIS
     Dosage: 10 MG, BID
     Dates: start: 20110215
  2. AVAPRO [Concomitant]
     Indication: HYPERTENSION
     Dosage: 300 MG, UNK
     Route: 048
  3. FOSAMAX [Concomitant]
     Indication: OSTEOPOROSIS
     Dosage: 75 MG, WEEKLY
     Route: 048
  4. HYDROCHLOROTHIAZIDE [Concomitant]
     Indication: HYPERTENSION
     Dosage: 25 MG, QD
     Route: 048
  5. LOPRESSOR [Concomitant]
     Indication: HYPERTENSION
     Dosage: 25 MG, QD
     Route: 048
  6. CARBAMAZEPINE DISPENSING SOLUTIONS [Concomitant]
     Indication: TRIGEMINAL NEURALGIA
     Dosage: 200 MG, UNK
     Route: 048
  7. GABAPENTIN [Concomitant]
     Indication: TRIGEMINAL NEURALGIA
     Dosage: 300 MG,
     Route: 048

REACTIONS (4)
  - Fall [Unknown]
  - Gait disturbance [Unknown]
  - Muscular weakness [Unknown]
  - Periorbital contusion [Unknown]
